FAERS Safety Report 8244534-0 (Version None)
Quarter: 2012Q1

REPORT INFORMATION
  Report Type: 
  Country: None (occurrence: None)
  Receive Date: 20120329
  Receipt Date: 20120314
  Transmission Date: 20120608
  Serious: Yes (Hospitalization, Other)
  Sender: FDA-Public Use
  Company Number: FR-ALEXION-A201200486

PATIENT
  Sex: Male
  Weight: 65 kg

DRUGS (1)
  1. SOLIRIS [Suspect]
     Indication: HAEMOLYTIC URAEMIC SYNDROME
     Dosage: 1200 MG, UNK
     Route: 042

REACTIONS (9)
  - INFUSION RELATED REACTION [None]
  - HYPERTENSION [None]
  - TACHYCARDIA [None]
  - HYPERSENSITIVITY [None]
  - PAIN [None]
  - EYE PAIN [None]
  - PAIN IN EXTREMITY [None]
  - LACRIMATION INCREASED [None]
  - TREMOR [None]
